FAERS Safety Report 24292714 (Version 1)
Quarter: 2024Q3

REPORT INFORMATION
  Report Type: Spontaneous
  Country: ZA (occurrence: ZA)
  Receive Date: 20240906
  Receipt Date: 20240906
  Transmission Date: 20241017
  Serious: Yes (Other)
  Sender: TEVA
  Company Number: ZA-TEVA-VS-3238508

PATIENT
  Age: 68 Year
  Sex: Female

DRUGS (2)
  1. METHOTREXATE [Suspect]
     Active Substance: METHOTREXATE
     Indication: Psoriatic arthropathy
     Route: 065
     Dates: start: 202010
  2. SULFASALAZINE [Suspect]
     Active Substance: SULFASALAZINE
     Indication: Psoriatic arthropathy
     Route: 065
     Dates: start: 202104, end: 202106

REACTIONS (3)
  - Toxicity to various agents [Unknown]
  - Hypertransaminasaemia [Unknown]
  - Condition aggravated [Unknown]
